FAERS Safety Report 10788993 (Version 3)
Quarter: 2015Q3

REPORT INFORMATION
  Report Type: Spontaneous
  Country: US (occurrence: US)
  Receive Date: 20150212
  Receipt Date: 20150713
  Transmission Date: 20151125
  Serious: Yes (Other)
  Sender: FDA-Public Use
  Company Number: US-BAYER-2015-020234

PATIENT
  Age: 25 Year
  Sex: Female
  Weight: 61 kg

DRUGS (8)
  1. ORTHO TRI CYCLEN [Concomitant]
     Active Substance: ETHINYL ESTRADIOL\NORGESTIMATE
  2. ALBUTEROL. [Concomitant]
     Active Substance: ALBUTEROL
     Dosage: 2 PUFFS EVERY 4-6 HOURS
  3. NEXIUM [Concomitant]
     Active Substance: ESOMEPRAZOLE MAGNESIUM
     Dosage: 40 MG, QD
  4. MIRENA [Suspect]
     Active Substance: LEVONORGESTREL
     Indication: CONTRACEPTION
     Dosage: 20 MCG/24HR, CONT
     Route: 015
     Dates: start: 20090121, end: 20121230
  5. PREDNISONE. [Concomitant]
     Active Substance: PREDNISONE
     Dosage: 10 MG, 5 TABS DAY ONE, 4 TABS DAYS TWO AND THREE, 3 TABS DAYS THREE AND FOUR, 2 TABS DAYS FIVE
  6. CEFTIN [Concomitant]
     Active Substance: CEFUROXIME AXETIL
     Dosage: 500 MG, BID
     Route: 048
  7. PRENATAL VITAMINS [Concomitant]
     Active Substance: VITAMINS
     Dosage: 1 TABLET DAILY
  8. PULMICORT TURBUHALER [Concomitant]
     Active Substance: BUDESONIDE
     Dosage: 2 PUFFS TWICE A DAY

REACTIONS (13)
  - Injury [None]
  - Genital haemorrhage [None]
  - Fear [None]
  - Pregnancy with contraceptive device [None]
  - Uterine perforation [None]
  - Internal injury [None]
  - Drug ineffective [None]
  - Pelvic pain [None]
  - Abdominal pain [None]
  - Emotional distress [None]
  - Medical device discomfort [None]
  - Depression [None]
  - Anxiety [None]

NARRATIVE: CASE EVENT DATE: 201007
